FAERS Safety Report 7660713-5 (Version None)
Quarter: 2011Q3

REPORT INFORMATION
  Report Type: 
  Country: None (occurrence: None)
  Receive Date: 20110805
  Receipt Date: 20101008
  Transmission Date: 20111222
  Serious: No
  Sender: FDA-Public Use
  Company Number: US-ABBOTT-10P-163-0677961-00

PATIENT
  Sex: Male
  Weight: 93.07 kg

DRUGS (6)
  1. LIPITOR [Concomitant]
     Indication: BLOOD CHOLESTEROL INCREASED
     Dates: start: 20100901
  2. ASPIRIN [Concomitant]
     Indication: PROPHYLAXIS
  3. NIASPAN [Suspect]
     Indication: BLOOD CHOLESTEROL INCREASED
     Dates: start: 20091001, end: 20101005
  4. ASPIRIN [Concomitant]
     Indication: HOT FLUSH
  5. METOPROLOL TARTRATE [Concomitant]
     Indication: HYPERTENSION
  6. UNKNOWN STUDY DRUG [Concomitant]
     Indication: MYOCARDIAL INFARCTION

REACTIONS (2)
  - RASH [None]
  - PRURITUS [None]
